FAERS Safety Report 16832273 (Version 1)
Quarter: 2019Q3

REPORT INFORMATION
  Report Type: Spontaneous
  Country: US (occurrence: US)
  Receive Date: 20190920
  Receipt Date: 20190920
  Transmission Date: 20191005
  Serious: No
  Sender: FDA-Public Use
  Company Number: US-BRAINTREE LABORATORIES-180539

PATIENT
  Age: 63 Year
  Sex: Female
  Weight: 92.99 kg

DRUGS (1)
  1. SUPREP BOWEL PREP [Suspect]
     Active Substance: MAGNESIUM SULFATE\POTASSIUM SULFATE\SODIUM SULFATE
     Indication: COLONOSCOPY
     Dosage: 1 X 6 OZ. BOTTLE
     Route: 048

REACTIONS (5)
  - Vomiting [None]
  - Diarrhoea [None]
  - Decreased appetite [None]
  - Abdominal distension [None]
  - Abdominal pain [None]
